FAERS Safety Report 8865442 (Version 1)
Quarter: 2012Q4

REPORT INFORMATION
  Report Type: 
  Country: US (occurrence: US)
  Receive Date: 20121024
  Receipt Date: 20121024
  Transmission Date: 20130627
  Serious: No
  Sender: FDA-Public Use
  Company Number: US-AMGEN-USASP2012003040

PATIENT
  Age: 33 Year
  Sex: Female

DRUGS (1)
  1. ENBREL [Suspect]
     Indication: PSORIASIS
     Dosage: 50 mg, 2 times/wk
     Dates: start: 20120104, end: 20120107

REACTIONS (6)
  - Flatulence [Recovered/Resolved]
  - Arthralgia [Recovered/Resolved]
  - Headache [Recovered/Resolved]
  - Influenza like illness [Recovered/Resolved]
  - Psoriasis [Unknown]
  - Diarrhoea [Recovered/Resolved]
